FAERS Safety Report 6918692-1 (Version None)
Quarter: 2010Q3

REPORT INFORMATION
  Report Type: 
  Country: None (occurrence: None)
  Receive Date: 20100811
  Receipt Date: 20100729
  Transmission Date: 20110219
  Serious: Yes (Death, Hospitalization, Other)
  Sender: FDA-Public Use
  Company Number: PHHY2008JP28292

PATIENT
  Sex: Female
  Weight: 45 kg

DRUGS (5)
  1. ICL670A ICL+DISTAB [Suspect]
     Indication: MYELODYSPLASTIC SYNDROME
     Dosage: 1000 MG, QD
     Dates: start: 20081030, end: 20081109
  2. ICL670A ICL+DISTAB [Suspect]
     Indication: IRON OVERLOAD
  3. RED BLOOD CELLS [Concomitant]
     Dosage: 2 U, UNK
     Dates: start: 20060901
  4. GLAKAY [Concomitant]
     Indication: MYELODYSPLASTIC SYNDROME
     Dosage: 45 MG
     Route: 048
     Dates: start: 20081030
  5. PRIMOBOLAN [Concomitant]
     Indication: MYELODYSPLASTIC SYNDROME
     Dosage: UNK
     Dates: start: 20081030

REACTIONS (13)
  - C-REACTIVE PROTEIN INCREASED [None]
  - CONJUNCTIVAL HYPERAEMIA [None]
  - EPIDERMAL NECROSIS [None]
  - ERYTHEMA MULTIFORME [None]
  - GAMMA-GLUTAMYLTRANSFERASE INCREASED [None]
  - GENERALISED ERYTHEMA [None]
  - MALIGNANT NEOPLASM PROGRESSION [None]
  - OCULAR HYPERAEMIA [None]
  - ORAL PAIN [None]
  - PRURITUS [None]
  - PYREXIA [None]
  - SERUM FERRITIN INCREASED [None]
  - STEVENS-JOHNSON SYNDROME [None]
